FAERS Safety Report 5718325-6 (Version None)
Quarter: 2008Q2

REPORT INFORMATION
  Report Type: 
  Country: None (occurrence: None)
  Receive Date: 20080425
  Receipt Date: 20080417
  Transmission Date: 20081010
  Serious: Yes (Death, Hospitalization)
  Sender: FDA-Public Use
  Company Number: US-PURDUE-USA_2007_0026585

PATIENT
  Age: 72 Year
  Sex: Male
  Weight: 83 kg

DRUGS (11)
  1. MS CONTIN [Suspect]
     Indication: DRUG USE FOR UNKNOWN INDICATION
     Dosage: 15 MG, BID
     Route: 065
     Dates: start: 20061031
  2. MSIR CAPSULES [Suspect]
     Indication: DRUG USE FOR UNKNOWN INDICATION
     Dosage: 15 MG, Q4H PRN
     Route: 065
     Dates: start: 20061031
  3. SU - 011, 248 (SUNITINIB MALATE) [Suspect]
     Indication: PROSTATE CANCER
     Dosage: 50 MG, DAILY
     Route: 048
     Dates: start: 20061031, end: 20061125
  4. SU - 011, 248 (SUNITINIB MALATE) [Suspect]
     Dosage: UNK, UNK
     Route: 048
     Dates: start: 20061212, end: 20070115
  5. TAMSULOSIN HCL [Suspect]
     Indication: DRUG USE FOR UNKNOWN INDICATION
     Dosage: .4 MG, DAILY
     Route: 048
     Dates: start: 20061031, end: 20061125
  6. TAMSULOSIN HCL [Suspect]
     Dosage: UNK, UNK
     Dates: start: 20061130
  7. ZOLADEX [Concomitant]
     Indication: DRUG USE FOR UNKNOWN INDICATION
     Dosage: UNK, SEE TEXT
     Dates: start: 20051213
  8. ATENOLOL [Concomitant]
     Indication: DRUG USE FOR UNKNOWN INDICATION
     Dosage: 25 MG, DAILY
     Route: 048
  9. DIGOXIN [Concomitant]
     Indication: DRUG USE FOR UNKNOWN INDICATION
     Dosage: .375 MG, DAILY
     Route: 048
  10. WARFARIN SODIUM [Concomitant]
     Indication: DRUG USE FOR UNKNOWN INDICATION
     Dosage: 5 MG, DAILY
     Route: 048
  11. LISINOPRIL [Concomitant]
     Indication: DRUG USE FOR UNKNOWN INDICATION
     Dosage: 10 MG, DAILY
     Route: 048

REACTIONS (4)
  - DIZZINESS [None]
  - DYSPNOEA [None]
  - PROSTATE CANCER [None]
  - PULMONARY EMBOLISM [None]
